FAERS Safety Report 4582692-X (Version None)
Quarter: 2005Q1

REPORT INFORMATION
  Report Type: 
  Country: None (occurrence: None)
  Receive Date: 20050215
  Receipt Date: 20050207
  Transmission Date: 20050727
  Serious: Yes (Other)
  Sender: FDA-Public Use
  Company Number: US-GLAXOSMITHKLINE-A0544210A

PATIENT
  Age: 44 Year
  Sex: Female

DRUGS (1)
  1. SENSODYNE EXTRA WHITENING TOOTHPASTE [Suspect]
     Indication: SENSITIVITY OF TEETH
     Route: 048
     Dates: start: 20050204, end: 20050206

REACTIONS (2)
  - GASTROENTERITIS VIRAL [None]
  - PHARMACEUTICAL PRODUCT COMPLAINT [None]
